FAERS Safety Report 9868990 (Version 2)
Quarter: 2015Q3

REPORT INFORMATION
  Report Type: Report from Study
  Country: US (occurrence: US)
  Receive Date: 20140205
  Receipt Date: 20150717
  Transmission Date: 20151125
  Serious: Yes (Hospitalization, Other)
  Sender: FDA-Public Use
  Company Number: US-JNJFOC-20140114963

PATIENT
  Age: 28 Year
  Sex: Female
  Weight: 99.79 kg

DRUGS (8)
  1. BENADRYL [Suspect]
     Active Substance: DIPHENHYDRAMINE HYDROCHLORIDE
     Indication: SLEEP DISORDER
     Dosage: UNTIL ATLEAST 30 WEEKS
     Route: 065
     Dates: start: 20121027
  2. LITHIUM. [Suspect]
     Active Substance: LITHIUM
     Indication: BIPOLAR DISORDER
     Dosage: 900-1200 MG??UNTIL ATLEAST 30 WEEKS
     Route: 065
     Dates: start: 20121027
  3. RISPERDAL [Suspect]
     Active Substance: RISPERIDONE
     Indication: BIPOLAR DISORDER
     Dosage: UNTIL ATLEAST 30 WEEKS
     Route: 065
     Dates: start: 20121027
  4. KLONOPIN [Suspect]
     Active Substance: CLONAZEPAM
     Indication: ANXIETY
     Dosage: DURATION: UNTIL ATLEAST 30 WEEKS
     Route: 065
     Dates: start: 20121027
  5. FOLIC ACID. [Concomitant]
     Active Substance: FOLIC ACID
     Indication: PREGNANCY
     Dosage: AT LEAST 30 WEEKS
     Route: 065
     Dates: start: 20121027
  6. SEROQUEL [Suspect]
     Active Substance: QUETIAPINE FUMARATE
     Indication: SLEEP DISORDER
     Dosage: UNTIL ATLEAST 30 WEEKS
     Route: 065
  7. BENADRYL [Suspect]
     Active Substance: DIPHENHYDRAMINE HYDROCHLORIDE
     Route: 065
  8. METFORMIN [Suspect]
     Active Substance: METFORMIN HYDROCHLORIDE
     Indication: DIABETES MELLITUS
     Dosage: UNTIL ATLEAST 30 WEEKS
     Route: 065
     Dates: start: 20121027

REACTIONS (3)
  - Type 2 diabetes mellitus [Unknown]
  - Psychotic disorder [Unknown]
  - Exposure during pregnancy [Recovered/Resolved]

NARRATIVE: CASE EVENT DATE: 2012
